FAERS Safety Report 20199299 (Version 1)
Quarter: 2021Q4

REPORT INFORMATION
  Report Type: Spontaneous
  Country: US (occurrence: None)
  Receive Date: 20211216
  Receipt Date: 20211216
  Transmission Date: 20220303
  Serious: Yes (Hospitalization)
  Sender: FDA-Public Use
  Company Number: None

PATIENT
  Age: 75 Year
  Sex: Male
  Weight: 59.87 kg

DRUGS (1)
  1. DURVALUMAB [Suspect]
     Active Substance: DURVALUMAB
     Indication: Lung adenocarcinoma stage III
     Dosage: FREQUENCY : ONCE;?
     Route: 042
     Dates: start: 20200724, end: 20210108

REACTIONS (3)
  - Pneumonia streptococcal [None]
  - Pneumonitis [None]
  - Acute respiratory failure [None]

NARRATIVE: CASE EVENT DATE: 20210408
